FAERS Safety Report 20072414 (Version 1)
Quarter: 2021Q4

REPORT INFORMATION
  Report Type: Report from Study
  Country: CA (occurrence: CA)
  Receive Date: 20211116
  Receipt Date: 20211116
  Transmission Date: 20220303
  Serious: Yes (Other)
  Sender: FDA-Public Use
  Company Number: CA-ABBVIE-21K-028-4160874-00

PATIENT
  Sex: Female

DRUGS (1)
  1. HUMIRA [Suspect]
     Active Substance: ADALIMUMAB
     Indication: Crohn^s disease
     Route: 058
     Dates: start: 20161104

REACTIONS (9)
  - Anal fistula [Unknown]
  - Weight increased [Unknown]
  - Device issue [Unknown]
  - Depression [Unknown]
  - Crying [Unknown]
  - Anxiety [Unknown]
  - Diarrhoea [Unknown]
  - Musculoskeletal pain [Unknown]
  - Injection site pain [Unknown]

NARRATIVE: CASE EVENT DATE: 20160101
